FAERS Safety Report 9382320 (Version 1)
Quarter: 2013Q3

REPORT INFORMATION
  Report Type: Spontaneous
  Country: US (occurrence: US)
  Receive Date: 20130703
  Receipt Date: 20130703
  Transmission Date: 20140515
  Serious: Yes (Other)
  Sender: FDA-Public Use
  Company Number: US-UCBSA-090178

PATIENT
  Sex: 0

DRUGS (2)
  1. VIMPAT [Suspect]
     Dosage: UNKNOWN DOSE
  2. TEGRETAL [Interacting]
     Dosage: UNKNOWN DOSE

REACTIONS (2)
  - Type 2 diabetes mellitus [Unknown]
  - Drug interaction [Unknown]
